FAERS Safety Report 6044510-2 (Version None)
Quarter: 2009Q1

REPORT INFORMATION
  Report Type: 
  Country: None (occurrence: None)
  Receive Date: 20090120
  Receipt Date: 20090109
  Transmission Date: 20090719
  Serious: Yes (Other)
  Sender: FDA-Public Use
  Company Number: GB-ROCHE-607525

PATIENT
  Sex: Female
  Weight: 126 kg

DRUGS (9)
  1. ORLISTAT [Suspect]
     Indication: OBESITY
     Route: 048
     Dates: start: 20080807
  2. TRAMADOL HCL [Concomitant]
     Dosage: DOSE: 2X50 MG
     Route: 048
  3. ATENOLOL [Concomitant]
     Dosage: INDICATION REPORTED AS: HEART
     Route: 048
     Dates: start: 19780101
  4. LEVOTHYROXINE SODIUM [Concomitant]
     Indication: HYPOTHYROIDISM
     Route: 048
  5. BEZAFIBRATE [Concomitant]
     Route: 048
  6. FRUSEMIDE [Concomitant]
     Indication: DRUG THERAPY
     Route: 048
  7. NICORANDIL [Concomitant]
     Dosage: GTN SPRAY NICORANDIL, SPRAY UNDER TONGUE, UNKNOWN DOSE AS REQUIRED, INDICATION REPORTED AS: HEART
     Route: 050
  8. METFORMIN HCL [Concomitant]
     Route: 048
  9. ASPIRIN [Concomitant]
     Dosage: INDICATION REPORTED AS: HEART
     Route: 048
     Dates: start: 19780101, end: 20081211

REACTIONS (1)
  - DEEP VEIN THROMBOSIS [None]
